FAERS Safety Report 5598850-1 (Version None)
Quarter: 2008Q1

REPORT INFORMATION
  Report Type: 
  Country: None (occurrence: None)
  Receive Date: 20080122
  Receipt Date: 20080114
  Transmission Date: 20080703
  Serious: Yes (Other)
  Sender: FDA-Public Use
  Company Number: US-BRISTOL-MYERS SQUIBB COMPANY-10843530

PATIENT
  Age: 9 Year
  Sex: Male
  Weight: 29 kg

DRUGS (3)
  1. BMS232632 [Suspect]
     Indication: HIV INFECTION
     Route: 048
     Dates: start: 20010417
  2. VIDEX [Suspect]
     Indication: HIV INFECTION
     Route: 048
     Dates: start: 20010417
  3. ZERIT [Suspect]
     Indication: HIV INFECTION
     Route: 048
     Dates: start: 20010417

REACTIONS (2)
  - BLOOD BILIRUBIN INCREASED [None]
  - BLOOD BILIRUBIN UNCONJUGATED INCREASED [None]
